FAERS Safety Report 22057780 (Version 1)
Quarter: 2023Q1

REPORT INFORMATION
  Report Type: Report from Study
  Country: US (occurrence: US)
  Receive Date: 20230303
  Receipt Date: 20230303
  Transmission Date: 20230418
  Serious: No
  Sender: FDA-Public Use
  Company Number: US-HRARD-2021000282

PATIENT
  Age: 77 Year
  Sex: Female

DRUGS (2)
  1. METOPIRONE [Suspect]
     Active Substance: METYRAPONE
     Indication: Pituitary-dependent Cushing^s syndrome
     Dosage: 250 MG: TAKE 2 CAPSULES (500 MG) BY MOUTH TWICE DAILY
     Route: 048
     Dates: start: 20210305
  2. Hydrocortisone  cream  2.5% [Concomitant]
     Indication: Product used for unknown indication

REACTIONS (3)
  - Gastric disorder [Not Recovered/Not Resolved]
  - Flatulence [Not Recovered/Not Resolved]
  - Off label use [Not Recovered/Not Resolved]

NARRATIVE: CASE EVENT DATE: 20210305
